FAERS Safety Report 16367395 (Version 2)
Quarter: 2019Q2

REPORT INFORMATION
  Report Type: Spontaneous
  Country: US (occurrence: US)
  Receive Date: 20190529
  Receipt Date: 20190603
  Transmission Date: 20190711
  Serious: No
  Sender: FDA-Public Use
  Company Number: US-PFIZER INC-2019225670

PATIENT
  Sex: Female

DRUGS (2)
  1. ADVIL [Suspect]
     Active Substance: IBUPROFEN
     Dosage: 3 DF, SINGLE
     Dates: start: 2019, end: 2019
  2. ADVIL [Suspect]
     Active Substance: IBUPROFEN
     Dosage: 2 DF, UNK

REACTIONS (4)
  - Oropharyngeal pain [Unknown]
  - Oesophageal discomfort [Unknown]
  - Abdominal pain upper [Unknown]
  - Expired product administered [Unknown]

NARRATIVE: CASE EVENT DATE: 20190522
